FAERS Safety Report 7194332-4 (Version None)
Quarter: 2010Q4

REPORT INFORMATION
  Report Type: 
  Country: None (occurrence: None)
  Receive Date: 20101223
  Receipt Date: 20101213
  Transmission Date: 20110411
  Serious: Yes (Other)
  Sender: FDA-Public Use
  Company Number: US-ELI_LILLY_AND_COMPANY-US201012003789

PATIENT
  Age: 58 Year
  Sex: Female
  Weight: 54 kg

DRUGS (11)
  1. STRATTERA [Suspect]
     Indication: TOURETTE'S DISORDER
     Dosage: UNK, UNK
     Route: 048
     Dates: start: 20100923, end: 20101104
  2. PRISTIQ [Concomitant]
     Indication: DEPRESSION
     Dosage: 1 D/F, UNK
     Dates: start: 20100624
  3. ELAVIL [Concomitant]
     Dosage: 20 MG, EACH EVENING
     Route: 048
  4. PROVIGIL [Concomitant]
     Dosage: 200 MG, DAILY (1/D)
     Route: 048
  5. SIMVASTATIN [Concomitant]
     Dosage: 80 MG, EACH EVENING
     Route: 048
  6. PRILOSEC [Concomitant]
     Dosage: 20 MG, DAILY (1/D)
     Route: 048
  7. BACLOFEN [Concomitant]
     Dosage: 20 MG, 3/D
     Route: 048
  8. ATIVAN [Concomitant]
     Dosage: 2 MG, EACH EVENING
     Route: 048
  9. TOPAMAX [Concomitant]
     Dosage: 100 MG, 2/D
     Route: 048
  10. NEURONTIN [Concomitant]
     Dosage: 300 MG, 3/D
     Route: 048
  11. ABILIFY [Concomitant]
     Indication: DEPRESSION
     Dosage: 2 MG, DAILY (1/D)
     Route: 048

REACTIONS (2)
  - HAIR TEXTURE ABNORMAL [None]
  - OFF LABEL USE [None]
